FAERS Safety Report 8795258 (Version 1)
Quarter: 2012Q4

REPORT INFORMATION
  Report Type: 
  Country: US (occurrence: US)
  Receive Date: 20120917
  Receipt Date: 20120917
  Transmission Date: 20130627
  Serious: Yes (Death)
  Sender: FDA-Public Use
  Company Number: US-ROCHE-1127478

PATIENT
  Sex: Male

DRUGS (6)
  1. AVASTIN [Suspect]
     Indication: SMALL INTESTINE CARCINOMA
     Route: 065
     Dates: start: 20050829
  2. AVASTIN [Suspect]
     Route: 065
     Dates: start: 20050913
  3. AVASTIN [Suspect]
     Route: 065
     Dates: start: 20050927
  4. AVASTIN [Suspect]
     Route: 065
     Dates: start: 20051012
  5. AVASTIN [Suspect]
     Route: 065
     Dates: start: 20051031
  6. AVASTIN [Suspect]
     Route: 065
     Dates: start: 20051114

REACTIONS (1)
  - Death [Fatal]
